FAERS Safety Report 14664182 (Version 3)
Quarter: 2018Q2

REPORT INFORMATION
  Report Type: Spontaneous
  Country: US (occurrence: US)
  Receive Date: 20180321
  Receipt Date: 20180629
  Transmission Date: 20180711
  Serious: Yes (Other)
  Sender: FDA-Public Use
  Company Number: US-VIIV HEALTHCARE LIMITED-US2018046813

PATIENT
  Sex: Male

DRUGS (3)
  1. TRIUMEQ [Suspect]
     Active Substance: ABACAVIR SULFATE\DOLUTEGRAVIR SODIUM\LAMIVUDINE
     Indication: HIV INFECTION
     Dosage: 1 MG, QD
     Route: 048
  2. JULUCA [Suspect]
     Active Substance: DOLUTEGRAVIR SODIUM\RILPIVIRINE HYDROCHLORIDE
     Indication: HIV INFECTION
     Dosage: 1 MG, QD
     Route: 048
  3. TIVICAY [Suspect]
     Active Substance: DOLUTEGRAVIR SODIUM
     Indication: HIV INFECTION
     Dosage: 1 MG, QD
     Route: 048
     Dates: start: 2016

REACTIONS (14)
  - Muscle twitching [Recovered/Resolved]
  - Anxiety [Not Recovered/Not Resolved]
  - Serotonin syndrome [Unknown]
  - Road traffic accident [Recovering/Resolving]
  - Rash [Not Recovered/Not Resolved]
  - Wound haemorrhage [Unknown]
  - Scab [Unknown]
  - Blister [Unknown]
  - Fatigue [Unknown]
  - Skin burning sensation [Not Recovered/Not Resolved]
  - Mental disorder [Unknown]
  - Nervous system disorder [Unknown]
  - Intervertebral disc disorder [Unknown]
  - Hypoaesthesia [Recovering/Resolving]

NARRATIVE: CASE EVENT DATE: 201712
